FAERS Safety Report 11298880 (Version 1)
Quarter: 2015Q3

REPORT INFORMATION
  Report Type: Spontaneous
  Country: US (occurrence: US)
  Receive Date: 20150722
  Receipt Date: 20150722
  Transmission Date: 20151125
  Serious: No
  Sender: FDA-Public Use
  Company Number: US-ELI_LILLY_AND_COMPANY-US201205005551

PATIENT
  Age: 59 Year
  Sex: Male

DRUGS (7)
  1. HUMATROPE [Suspect]
     Active Substance: SOMATROPIN
     Dosage: 0.1 MG, UNK
     Dates: start: 201110, end: 20120508
  2. CORTISONE [Concomitant]
     Active Substance: CORTISONE\HYDROCORTISONE
     Indication: BRAIN INJURY
  3. HYDROCORTISONE. [Concomitant]
     Active Substance: HYDROCORTISONE
     Dosage: 3.25 MG, UNK
  4. PREDNISONE. [Concomitant]
     Active Substance: PREDNISONE
     Dosage: 30 MG, UNK
  5. HUMATROPE [Suspect]
     Active Substance: SOMATROPIN
     Dosage: 0.05 MG, UNK
     Dates: start: 201110, end: 20120508
  6. HUMATROPE [Suspect]
     Active Substance: SOMATROPIN
     Indication: GROWTH HORMONE DEFICIENCY
     Dosage: 0.2 MG, UNK
     Dates: start: 201110, end: 20120508
  7. TESTOSTERONE. [Concomitant]
     Active Substance: TESTOSTERONE
     Indication: BRAIN INJURY

REACTIONS (15)
  - Middle ear effusion [Unknown]
  - Fluid retention [Unknown]
  - Head discomfort [Unknown]
  - Ear discomfort [Unknown]
  - Hypoacusis [Unknown]
  - Chromaturia [Unknown]
  - Oedema [Unknown]
  - Eyelid oedema [Unknown]
  - Otorrhoea [Unknown]
  - Dental operation [Unknown]
  - Rhinorrhoea [Unknown]
  - Ear pruritus [Unknown]
  - Sinus operation [Unknown]
  - Drug withdrawal syndrome [Unknown]
  - Rash pruritic [Unknown]

NARRATIVE: CASE EVENT DATE: 201112
